FAERS Safety Report 24852433 (Version 5)
Quarter: 2025Q3

REPORT INFORMATION
  Report Type: Spontaneous
  Country: US (occurrence: US)
  Receive Date: 20250116
  Receipt Date: 20250919
  Transmission Date: 20251021
  Serious: Yes (Hospitalization)
  Sender: SANOFI AVENTIS
  Company Number: US-SA-2025SA013279

PATIENT
  Age: 71 Year
  Sex: Female

DRUGS (1)
  1. DUPIXENT [Suspect]
     Active Substance: DUPILUMAB
     Indication: Asthma
     Dosage: 300 MG, QOW
     Route: 058

REACTIONS (10)
  - Hospitalisation [Unknown]
  - Dyspnoea exertional [Not Recovered/Not Resolved]
  - Hypertension [Unknown]
  - Cough [Unknown]
  - Rebound effect [Unknown]
  - Dysuria [Unknown]
  - Pollakiuria [Unknown]
  - Bladder disorder [Unknown]
  - Injection site pain [Unknown]
  - Therapeutic response decreased [Unknown]
